FAERS Safety Report 25033160 (Version 1)
Quarter: 2025Q1

REPORT INFORMATION
  Report Type: Spontaneous
  Country: US (occurrence: US)
  Receive Date: 20250303
  Receipt Date: 20250303
  Transmission Date: 20250409
  Serious: No
  Sender: NOVO NORDISK
  Company Number: US-NOVOPROD-1335188

PATIENT
  Sex: Female
  Weight: 133 kg

DRUGS (2)
  1. WEGOVY [Suspect]
     Active Substance: SEMAGLUTIDE
     Indication: Weight decreased
     Route: 058
     Dates: start: 2021
  2. SAXENDA [Suspect]
     Active Substance: LIRAGLUTIDE
     Indication: Weight decreased
     Route: 058
     Dates: end: 2021

REACTIONS (1)
  - Bronchitis [Unknown]
